FAERS Safety Report 8341787-5 (Version None)
Quarter: 2012Q2

REPORT INFORMATION
  Report Type: 
  Country: None (occurrence: None)
  Receive Date: 20120503
  Receipt Date: 20120418
  Transmission Date: 20120825
  Serious: Yes (Hospitalization)
  Sender: FDA-Public Use
  Company Number: JPI-P-021021

PATIENT
  Age: 68 Year
  Sex: Female
  Weight: 86.1834 kg

DRUGS (2)
  1. XYREM [Suspect]
     Indication: HYPERSOMNIA
     Dosage: (UNKNOWN) ORAL, 6 GM (3 GM, 2 IN 1 D), ORAL
     Route: 048
     Dates: start: 20050901
  2. XYREM [Suspect]
     Indication: HYPERSOMNIA
     Dosage: (UNKNOWN) ORAL, 6 GM (3 GM, 2 IN 1 D), ORAL
     Route: 048
     Dates: end: 20120101

REACTIONS (7)
  - NASOPHARYNGITIS [None]
  - NASAL CONGESTION [None]
  - OROPHARYNGEAL PAIN [None]
  - RHINORRHOEA [None]
  - MEMORY IMPAIRMENT [None]
  - FATIGUE [None]
  - INTESTINAL OBSTRUCTION [None]
